FAERS Safety Report 23668262 (Version 1)
Quarter: 2024Q1

REPORT INFORMATION
  Report Type: Other
  Country: PT (occurrence: PT)
  Receive Date: 20240325
  Receipt Date: 20240325
  Transmission Date: 20240409
  Serious: Yes (Hospitalization)
  Sender: FDA-Public Use
  Company Number: PT-B.Braun Medical Inc.-2154778

PATIENT
  Age: 38 Year
  Sex: Female

DRUGS (2)
  1. HEPARIN SODIUM IN DEXTROSE [Suspect]
     Active Substance: HEPARIN SODIUM
     Indication: Thrombosis
  2. ALTEPLASE [Suspect]
     Active Substance: ALTEPLASE

REACTIONS (3)
  - Dysarthria [Recovered/Resolved]
  - Maternal exposure during pregnancy [Recovered/Resolved]
  - Facial paralysis [Recovered/Resolved]
